FAERS Safety Report 18572737 (Version 4)
Quarter: 2021Q1

REPORT INFORMATION
  Report Type: Spontaneous
  Country: IT (occurrence: IT)
  Receive Date: 20201202
  Receipt Date: 20210127
  Transmission Date: 20210419
  Serious: Yes (Death, Hospitalization, Other)
  Sender: FDA-Public Use
  Company Number: IT-009507513-0906ITA00014

PATIENT
  Age: 61 Year
  Sex: Female

DRUGS (6)
  1. GRANULOCYTE COLONY STIMULATING FACTOR (UNSPECIFIED) [Concomitant]
     Active Substance: FILGRASTIM
  2. CASPOFUNGIN ACETATE. [Suspect]
     Active Substance: CASPOFUNGIN ACETATE
     Indication: INFECTION
  3. CASPOFUNGIN ACETATE. [Suspect]
     Active Substance: CASPOFUNGIN ACETATE
     Indication: PYREXIA
     Dosage: UNK
     Dates: start: 200308
  4. TEICOPLANIN [Concomitant]
     Active Substance: TEICOPLANIN
  5. MEROPENEM. [Concomitant]
     Active Substance: MEROPENEM
  6. AMPHOTERICIN B (+) CHOLESTEROL (+) DISTEAROYLPHOSPHATIDYLGLYCEROL (+) [Concomitant]
     Active Substance: AMPHOTERICIN B\CHOLESTEROL
     Dosage: 3 MG/KG, QD
     Dates: start: 200309

REACTIONS (6)
  - Pleural effusion [Recovered/Resolved]
  - B-cell lymphoma [Not Recovered/Not Resolved]
  - Fusarium infection [Recovered/Resolved]
  - Pyrexia [Unknown]
  - Cachexia [Fatal]
  - Hepatic function abnormal [Fatal]

NARRATIVE: CASE EVENT DATE: 200309
